FAERS Safety Report 9188844 (Version 5)
Quarter: 2013Q4

REPORT INFORMATION
  Report Type: Report from Study
  Country: CA (occurrence: CA)
  Receive Date: 20130326
  Receipt Date: 20131128
  Transmission Date: 20140711
  Serious: Yes (Life-Threatening, Hospitalization)
  Sender: FDA-Public Use
  Company Number: CA-ROCHE-1205630

PATIENT
  Age: 61 Year
  Sex: Female
  Weight: 62 kg

DRUGS (4)
  1. ACTEMRA [Suspect]
     Indication: RHEUMATOID ARTHRITIS
     Route: 042
     Dates: start: 20110620
  2. ARAVA [Concomitant]
  3. IBUPROFEN [Concomitant]
     Route: 065
  4. SYMBICORT [Concomitant]

REACTIONS (2)
  - Asthma [Recovered/Resolved]
  - Asthenia [Not Recovered/Not Resolved]
